APPROVED DRUG PRODUCT: LORATADINE
Active Ingredient: LORATADINE
Strength: 10MG
Dosage Form/Route: CAPSULE;ORAL
Application: A202538 | Product #001
Applicant: BIONPHARMA INC
Approved: Dec 21, 2018 | RLD: No | RS: No | Type: OTC